FAERS Safety Report 13776696 (Version 2)
Quarter: 2017Q3

REPORT INFORMATION
  Report Type: Spontaneous
  Country: ES (occurrence: ES)
  Receive Date: 20170721
  Receipt Date: 20170725
  Transmission Date: 20171127
  Serious: Yes (Hospitalization)
  Sender: FDA-Public Use
  Company Number: ES-PFIZER INC-2017314645

PATIENT
  Age: 77 Year
  Sex: Female

DRUGS (7)
  1. OMEPRAZOLE. [Concomitant]
     Active Substance: OMEPRAZOLE
     Dosage: 20 MG, 1X/DAY (1-0-0)
     Route: 048
  2. TROXERUTIN [Concomitant]
     Active Substance: TROXERUTIN
     Dosage: 1 GTT, 2X/DAY (1-0-1)
     Route: 048
  3. LYRICA [Suspect]
     Active Substance: PREGABALIN
     Indication: SCIATICA
     Dosage: 75 MG, 2X/DAY (1-0-1)
     Route: 048
     Dates: start: 20170331, end: 20170627
  4. FENTANYL. [Concomitant]
     Active Substance: FENTANYL
     Indication: SCIATICA
     Dosage: 75 UG, 1 PATCH EVERY 72 HOURS
     Route: 062
  5. PARACETAMOL [Concomitant]
     Active Substance: ACETAMINOPHEN
     Dosage: UNK UNK, 3X/DAY (1-1-1)
     Route: 048
  6. ANEUROL [Concomitant]
     Dosage: 1 DF, 1X/DAY (5 MG/ 10 MG) (0-0-1)
     Route: 048
  7. NYSTATIN. [Concomitant]
     Active Substance: NYSTATIN
     Dosage: UNK
     Route: 048

REACTIONS (6)
  - Swollen tongue [Recovered/Resolved]
  - Eye oedema [Recovered/Resolved]
  - Dysarthria [Recovered/Resolved]
  - Oedema [Recovered/Resolved]
  - Lip oedema [Recovered/Resolved]
  - Paraesthesia [Recovered/Resolved]

NARRATIVE: CASE EVENT DATE: 201703
